FAERS Safety Report 6400409-0 (Version None)
Quarter: 2009Q4

REPORT INFORMATION
  Report Type: 
  Country: None (occurrence: None)
  Receive Date: 20091007
  Receipt Date: 20091007
  Transmission Date: 20100525
  Serious: Yes (Life-Threatening, Hospitalization)
  Sender: FDA-Public Use
  Company Number: None

PATIENT
  Sex: Female
  Weight: 79.8331 kg

DRUGS (1)
  1. YAZ [Suspect]
     Indication: OVARIAN CYST
     Dates: start: 20090401, end: 20090924

REACTIONS (1)
  - PULMONARY EMBOLISM [None]
